FAERS Safety Report 14598285 (Version 1)
Quarter: 2018Q1

REPORT INFORMATION
  Report Type: Spontaneous
  Country: US (occurrence: US)
  Receive Date: 20180302
  Receipt Date: 20180302
  Transmission Date: 20180509
  Serious: No
  Sender: FDA-Public Use
  Company Number: None

PATIENT
  Age: 34 Year
  Sex: Female
  Weight: 68.04 kg

DRUGS (1)
  1. PARAGARD T 380A [Suspect]
     Active Substance: COPPER

REACTIONS (8)
  - Palpitations [None]
  - Cardiovascular disorder [None]
  - Insomnia [None]
  - Depression [None]
  - Anxiety [None]
  - Panic attack [None]
  - Muscle spasms [None]
  - Blood glucose abnormal [None]

NARRATIVE: CASE EVENT DATE: 20170701
